FAERS Safety Report 4860341-0 (Version None)
Quarter: 2005Q4

REPORT INFORMATION
  Report Type: 
  Country: None (occurrence: None)
  Receive Date: 20051219
  Receipt Date: 20051209
  Transmission Date: 20060501
  Serious: Yes (Other)
  Sender: FDA-Public Use
  Company Number: CA-BRISTOL-MYERS SQUIBB COMPANY-13220355

PATIENT
  Age: 83 Year
  Sex: Male

DRUGS (1)
  1. TEQUIN [Suspect]
     Route: 048

REACTIONS (2)
  - DISORIENTATION [None]
  - HYPOGLYCAEMIA [None]
